FAERS Safety Report 9540473 (Version 2)
Quarter: 2013Q4

REPORT INFORMATION
  Report Type: Spontaneous
  Country: US (occurrence: US)
  Receive Date: 20130920
  Receipt Date: 20131227
  Transmission Date: 20140711
  Serious: No
  Sender: FDA-Public Use
  Company Number: US-TEVA-431098USA

PATIENT
  Sex: Male

DRUGS (1)
  1. COPAXONE [Suspect]

REACTIONS (3)
  - Injection site discomfort [Unknown]
  - Injection site mass [Recovered/Resolved]
  - Hypersensitivity [Recovered/Resolved]
